FAERS Safety Report 21303237 (Version 1)
Quarter: 2022Q3

REPORT INFORMATION
  Report Type: Spontaneous
  Country: US (occurrence: US)
  Receive Date: 20220907
  Receipt Date: 20220907
  Transmission Date: 20221027
  Serious: No
  Sender: FDA-Public Use
  Company Number: US-BAYER-2022A117525

PATIENT
  Sex: Female

DRUGS (1)
  1. VITRAKVI [Suspect]
     Active Substance: LAROTRECTINIB
     Dosage: 100 MG

REACTIONS (3)
  - Headache [None]
  - Ear pain [None]
  - Inappropriate schedule of product administration [None]
